FAERS Safety Report 17445278 (Version 5)
Quarter: 2021Q1

REPORT INFORMATION
  Report Type: Spontaneous
  Country: US (occurrence: US)
  Receive Date: 20200221
  Receipt Date: 20210122
  Transmission Date: 20210419
  Serious: Yes (Other)
  Sender: FDA-Public Use
  Company Number: US-PFIZER INC-2020078187

PATIENT
  Age: 54 Year
  Sex: Female

DRUGS (3)
  1. XELJANZ [Suspect]
     Active Substance: TOFACITINIB CITRATE
     Indication: COLITIS ULCERATIVE
     Dosage: 10 MG, 2X/DAY
     Route: 048
     Dates: start: 20200102
  2. XELJANZ [Suspect]
     Active Substance: TOFACITINIB CITRATE
     Dosage: 5 MG, 2X/DAY
     Route: 048
     Dates: start: 20200102
  3. XELJANZ [Suspect]
     Active Substance: TOFACITINIB CITRATE
     Dosage: 5 MG, 2X/DAY
     Route: 048
     Dates: start: 202005

REACTIONS (7)
  - Pyrexia [Recovered/Resolved]
  - Pouchitis [Recovering/Resolving]
  - Intentional product misuse [Unknown]
  - Sleep disorder [Recovering/Resolving]
  - Micturition urgency [Recovering/Resolving]
  - Frequent bowel movements [Recovered/Resolved]
  - Haematochezia [Recovering/Resolving]

NARRATIVE: CASE EVENT DATE: 2020
